FAERS Safety Report 7783816-3 (Version None)
Quarter: 2011Q3

REPORT INFORMATION
  Report Type: 
  Country: None (occurrence: None)
  Receive Date: 20110928
  Receipt Date: 20110922
  Transmission Date: 20111222
  Serious: Yes (Life-Threatening, Hospitalization)
  Sender: FDA-Public Use
  Company Number: US-BAYER-2011-022523

PATIENT
  Age: 38 Year
  Sex: Female
  Weight: 63.492 kg

DRUGS (1)
  1. YASMIN [Suspect]
     Indication: CONTRACEPTION
     Dosage: UNK
     Dates: start: 20050501, end: 20061201

REACTIONS (8)
  - CHOLELITHIASIS [None]
  - GALLBLADDER INJURY [None]
  - DIARRHOEA [None]
  - ANXIETY [None]
  - CHOLECYSTITIS CHRONIC [None]
  - PAIN [None]
  - ANHEDONIA [None]
  - DYSMENORRHOEA [None]
